FAERS Safety Report 9975093 (Version 1)
Quarter: 2014Q1

REPORT INFORMATION
  Report Type: Report from Study
  Country: US (occurrence: US)
  Receive Date: 20140306
  Receipt Date: 20140306
  Transmission Date: 20141002
  Serious: No
  Sender: FDA-Public Use
  Company Number: US-ABBVIE-13P-163-1160126-00

PATIENT
  Age: 28 Year
  Sex: Female

DRUGS (6)
  1. HUMIRA [Suspect]
     Indication: CROHN^S DISEASE
     Dosage: DAY ONE: TWO 40MG INJECTION
     Route: 058
     Dates: start: 20130925, end: 20130925
  2. HUMIRA [Suspect]
     Dosage: DAY TWO: TWO 40MG INJECTIONS
     Route: 058
     Dates: start: 20130926, end: 20130926
  3. HUMIRA [Suspect]
     Dosage: DAY 15: TWO 40MG INJECTION
     Route: 058
     Dates: start: 20131009
  4. DEPO PROVERA [Concomitant]
     Indication: CONTRACEPTION
     Dosage: ONE VIAL EVERY THREE MONTHS
  5. CUSTOM ALLERGY SHOTS [Concomitant]
     Indication: HYPERSENSITIVITY
  6. PHENTERMINE [Concomitant]
     Indication: WEIGHT DECREASED
     Dosage: 30MG DAILY

REACTIONS (1)
  - Injection site pain [Not Recovered/Not Resolved]
